FAERS Safety Report 26153453 (Version 1)
Quarter: 2025Q4

REPORT INFORMATION
  Report Type: Spontaneous
  Country: EU (occurrence: EU)
  Receive Date: 20251214
  Receipt Date: 20251214
  Transmission Date: 20260118
  Serious: Yes (Life-Threatening, Other)
  Sender: BRISTOL-MYERS SQUIBB COMPANY
  Company Number: None

PATIENT
  Age: 48 Year
  Sex: Female

DRUGS (3)
  1. ELIQUIS [Suspect]
     Active Substance: APIXABAN
     Indication: Deep vein thrombosis
     Dates: start: 20250924, end: 20251120
  2. XARELTO [Suspect]
     Active Substance: RIVAROXABAN
     Indication: Embolism
  3. BILASTINE [Concomitant]
     Active Substance: BILASTINE
     Indication: Product used for unknown indication

REACTIONS (4)
  - Shock haemorrhagic [Unknown]
  - Vaginal haemorrhage [Unknown]
  - Suicidal ideation [Unknown]
  - Depressed mood [Unknown]
